FAERS Safety Report 19477029 (Version 7)
Quarter: 2022Q2

REPORT INFORMATION
  Report Type: Other
  Country: CA (occurrence: None)
  Receive Date: 20210630
  Receipt Date: 20220421
  Transmission Date: 20220721
  Serious: Yes (Hospitalization, Other)
  Sender: FDA-Public Use
  Company Number: CA-ROCHE-2841305

PATIENT
  Sex: Female

DRUGS (1)
  1. OCREVUS [Suspect]
     Active Substance: OCRELIZUMAB
     Indication: Primary progressive multiple sclerosis
     Dosage: 300 MG AT DAY 0 AND 14, THEN 600 MG EVERY 6 MONTH
     Route: 042
     Dates: start: 20190709

REACTIONS (5)
  - Arthropathy [Unknown]
  - Ligament sprain [Recovered/Resolved]
  - Thyroid disorder [Unknown]
  - Limb injury [Recovering/Resolving]
  - Infection [Recovered/Resolved]
